FAERS Safety Report 16395492 (Version 1)
Quarter: 2019Q2

REPORT INFORMATION
  Report Type: Spontaneous
  Country: DK (occurrence: DK)
  Receive Date: 20190605
  Receipt Date: 20190605
  Transmission Date: 20190711
  Serious: Yes (Hospitalization)
  Sender: FDA-Public Use
  Company Number: DK-MYLANLABS-2019M1051453

PATIENT
  Age: 46 Year
  Sex: Male
  Weight: 99 kg

DRUGS (4)
  1. ENTOCORT [Concomitant]
     Active Substance: BUDESONIDE
     Indication: CROHN^S DISEASE
     Dosage: STYRKE: 3 MG.
     Route: 048
     Dates: start: 20180904
  2. BACLOFEN MYLAN [Suspect]
     Active Substance: BACLOFEN
     Indication: HEADACHE
     Dosage: STYRKE: 10 MG.
     Route: 048
     Dates: end: 20181007
  3. STELARA [Concomitant]
     Active Substance: USTEKINUMAB
     Indication: CROHN^S DISEASE
     Dosage: STYRKE: 130 MG.
     Route: 042
     Dates: start: 20181001
  4. MATRIFEN [Concomitant]
     Active Substance: FENTANYL
     Indication: BACK PAIN
     Dosage: STYRKE: 75 MIKROGRAM/TIME.
     Route: 003
     Dates: start: 20180724

REACTIONS (2)
  - Aggression [Recovered/Resolved]
  - Confusional state [Recovered/Resolved]

NARRATIVE: CASE EVENT DATE: 20181007
